FAERS Safety Report 16572967 (Version 1)
Quarter: 2019Q3

REPORT INFORMATION
  Report Type: Spontaneous
  Country: US (occurrence: US)
  Receive Date: 20190715
  Receipt Date: 20190715
  Transmission Date: 20191004
  Serious: No
  Sender: FDA-Public Use
  Company Number: US-SA-2019SA190539

PATIENT
  Sex: Female

DRUGS (1)
  1. ROLAIDS GENERIC [Suspect]
     Active Substance: CALCIUM CARBONATE\MAGNESIUM HYDROXIDE
     Indication: THROAT IRRITATION

REACTIONS (3)
  - Tooth discolouration [Unknown]
  - Tongue discolouration [Unknown]
  - Skin discolouration [Unknown]
